FAERS Safety Report 7191587-7 (Version None)
Quarter: 2010Q4

REPORT INFORMATION
  Report Type: 
  Country: None (occurrence: None)
  Receive Date: 20101221
  Receipt Date: 20101221
  Transmission Date: 20110411
  Serious: Yes (Hospitalization)
  Sender: FDA-Public Use
  Company Number: None

PATIENT
  Age: 51 Year
  Sex: Female
  Weight: 87.27 kg

DRUGS (10)
  1. NORCO [Suspect]
     Indication: PAIN
     Dosage: 2X 5/325MG QID PRN PO (RECENT)
     Route: 048
  2. KLONOPIN [Suspect]
     Indication: ANXIETY
     Dosage: 2X 2MG TID PO (RECENT)
     Route: 048
  3. RISPERDAL [Concomitant]
  4. TRIHEXYPHENIDYL [Concomitant]
  5. POTASSIUM CHLORIDE [Concomitant]
  6. LASIX [Concomitant]
  7. OXCARBAZEPINE [Concomitant]
  8. OMEPRAZOLE [Concomitant]
  9. ADVAIR [Concomitant]
  10. VENTOLIN [Concomitant]

REACTIONS (3)
  - ACCIDENTAL OVERDOSE [None]
  - OXYGEN SATURATION DECREASED [None]
  - SOMNOLENCE [None]
